FAERS Safety Report 10876265 (Version 1)
Quarter: 2015Q1

REPORT INFORMATION
  Report Type: Spontaneous
  Country: US (occurrence: US)
  Receive Date: 20150227
  Receipt Date: 20150227
  Transmission Date: 20150721
  Serious: No
  Sender: FDA-Public Use
  Company Number: US-AMGEN-USASP2014026030

PATIENT
  Age: 54 Year
  Sex: Female

DRUGS (11)
  1. MUCINEX DM [Concomitant]
     Active Substance: DEXTROMETHORPHAN HYDROBROMIDE\GUAIFENESIN
     Dosage: UNK (30-600 ER)
  2. LEVOTHYROXIN [Concomitant]
     Active Substance: LEVOTHYROXINE
     Dosage: 100 MCG, UNK
  3. STARLIX [Concomitant]
     Active Substance: NATEGLINIDE
     Dosage: 120 MG, UNK
  4. FEXOFENADINE [Concomitant]
     Active Substance: FEXOFENADINE\FEXOFENADINE HYDROCHLORIDE
     Dosage: 30 MG, UNK
  5. VITAMIN D3 [Concomitant]
     Active Substance: CHOLECALCIFEROL
     Dosage: 5000 UNIT, UNK
  6. COENZYME Q10 [Concomitant]
     Active Substance: UBIDECARENONE
     Dosage: 10 MG, UNK
  7. LISINOPRIL. [Concomitant]
     Active Substance: LISINOPRIL
     Dosage: 10 MG, UNK
  8. OMEGA 3                            /01333901/ [Concomitant]
     Dosage: 1000 MG, UNK
  9. POTASSIUM [Concomitant]
     Active Substance: POTASSIUM
     Dosage: 75 MG, UNK
  10. CALCIUM [Concomitant]
     Active Substance: CALCIUM
     Dosage: 500 UNK, UNK
  11. ENBREL [Suspect]
     Active Substance: ETANERCEPT
     Indication: PRODUCT USED FOR UNKNOWN INDICATION
     Dosage: 50 MG, QWK
     Route: 058

REACTIONS (1)
  - Multiple allergies [Unknown]
